FAERS Safety Report 9282415 (Version 2)
Quarter: 2013Q2

REPORT INFORMATION
  Report Type: Spontaneous
  Country: US (occurrence: None)
  Receive Date: 20130506
  Receipt Date: 20130528
  Transmission Date: 20140414
  Serious: Yes (Other)
  Sender: FDA-Public Use
  Company Number: 2013P1005129

PATIENT
  Sex: Male

DRUGS (3)
  1. LITHIUM [Suspect]
  2. MORPHINE [Suspect]
     Indication: SURGERY
  3. OXYCONTIN [Suspect]
     Indication: PAIN

REACTIONS (3)
  - Unresponsive to stimuli [None]
  - Drug withdrawal syndrome [None]
  - Post procedural complication [None]
